FAERS Safety Report 4742640-6 (Version None)
Quarter: 2005Q3

REPORT INFORMATION
  Report Type: 
  Country: None (occurrence: None)
  Receive Date: 20050801
  Receipt Date: 20050302
  Transmission Date: 20060218
  Serious: Yes (Hospitalization)
  Sender: FDA-Public Use
  Company Number: 212812

PATIENT
  Age: 67 Year
  Sex: Male
  Weight: 93.4 kg

DRUGS (1)
  1. RITUXAN [Suspect]
     Indication: NON-HODGKIN'S LYMPHOMA
     Dosage: 700 MG, Q4W, INTRAVENOUS
     Route: 042
     Dates: end: 20050215

REACTIONS (2)
  - GRANULOCYTOPENIA [None]
  - PNEUMONIA [None]
